FAERS Safety Report 8984703 (Version 1)
Quarter: 2012Q4

REPORT INFORMATION
  Report Type: 
  Country: US (occurrence: US)
  Receive Date: 20121225
  Receipt Date: 20121225
  Transmission Date: 20130627
  Serious: No
  Sender: FDA-Public Use
  Company Number: US-JNJFOC-20121210266

PATIENT
  Sex: Male

DRUGS (2)
  1. SANDOZ FENTANYL TRANSDERMAL SYSTEM [Suspect]
     Indication: PRODUCT USED FOR UNKNOWN INDICATION
     Dosage: 25 ug/hr and 12.5 ug/hr
     Route: 062
     Dates: start: 201209
  2. MYLAN FENTANYL TRANSDERMAL SYSTEM [Suspect]
     Indication: PRODUCT USED FOR UNKNOWN INDICATION
     Dosage: 25 ug/hr and 12.5 ug/hr
     Route: 062
     Dates: start: 201209

REACTIONS (1)
  - Wrong technique in drug usage process [Recovered/Resolved]
